FAERS Safety Report 24140399 (Version 1)
Quarter: 2024Q3

REPORT INFORMATION
  Report Type: Spontaneous
  Country: ZA (occurrence: None)
  Receive Date: 20240726
  Receipt Date: 20240726
  Transmission Date: 20241017
  Serious: Yes (Death)
  Sender: ASTRAZENECA
  Company Number: 2024A166708

PATIENT
  Age: 52 Year
  Sex: Male

DRUGS (8)
  1. BUDESONIDE\FORMOTEROL [Suspect]
     Active Substance: BUDESONIDE\FORMOTEROL
     Indication: Asthma
     Dosage: 160 UG/INHAL/ 120 DOSE UNKNOWN
     Route: 055
  2. OXYCODONE HYDROCHLORIDE [Concomitant]
     Active Substance: OXYCODONE HYDROCHLORIDE
     Indication: Surgery
     Dosage: 10.0MG UNKNOWN
     Route: 048
  3. ADCO-CONTROMET [Concomitant]
     Dosage: 10.0MG UNKNOWN
     Route: 048
  4. MOVICOL [Concomitant]
     Active Substance: POLYETHYLENE GLYCOL 3350\POTASSIUM CHLORIDE\SODIUM BICARBONATE\SODIUM CHLORIDE
     Route: 048
  5. SERDEP [Concomitant]
     Indication: Psychiatric investigation
     Dosage: 100.0MG UNKNOWN
     Route: 048
  6. ACETAMINOPHEN\CODEINE\IBUPROFEN [Concomitant]
     Active Substance: ACETAMINOPHEN\CODEINE\IBUPROFEN
     Route: 048
  7. EFFERFLU C COLD AND FLU [Concomitant]
     Route: 048
  8. IBUMAX COLD AND FLU [Concomitant]
     Route: 048

REACTIONS (2)
  - Internal haemorrhage [Fatal]
  - Procedural complication [Fatal]
